FAERS Safety Report 7184060-3 (Version None)
Quarter: 2010Q4

REPORT INFORMATION
  Report Type: 
  Country: None (occurrence: None)
  Receive Date: 20101222
  Receipt Date: 20101210
  Transmission Date: 20110411
  Serious: Yes (Other)
  Sender: FDA-Public Use
  Company Number: PHHY2009CA22524

PATIENT
  Sex: Female

DRUGS (3)
  1. SANDOSTATIN LAR [Suspect]
     Indication: ACROMEGALY
     Dosage: 20 MG, EVERY 4 WEEKS
     Route: 030
     Dates: start: 20060707
  2. SANDOSTATIN LAR [Suspect]
     Dosage: 20 MG, QMO
     Route: 030
  3. ORTHO TRI-CYCLEN [Concomitant]
     Dosage: UNK

REACTIONS (7)
  - AMENORRHOEA [None]
  - CONTUSION [None]
  - HEADACHE [None]
  - MUSCLE SPASMS [None]
  - RASH [None]
  - SCAR EXCISION [None]
  - SKIN DISCOLOURATION [None]
